FAERS Safety Report 6911764-7 (Version None)
Quarter: 2010Q3

REPORT INFORMATION
  Report Type: 
  Country: None (occurrence: None)
  Receive Date: 20100806
  Receipt Date: 20100729
  Transmission Date: 20110219
  Serious: Yes (Hospitalization, Other)
  Sender: FDA-Public Use
  Company Number: US-MILLENNIUM PHARMACEUTICALS, INC.-2010-04132

PATIENT
  Age: 43 Year
  Sex: Female

DRUGS (1)
  1. VELCADE [Suspect]
     Indication: SALVAGE THERAPY
     Dosage: 1.3 MG/M2, CYCLIC

REACTIONS (2)
  - URAEMIC NEUROPATHY [None]
  - URINARY TRACT INFECTION [None]
